FAERS Safety Report 9836912 (Version 4)
Quarter: 2014Q1

REPORT INFORMATION
  Report Type: Spontaneous
  Country: US (occurrence: US)
  Receive Date: 20140123
  Receipt Date: 20140321
  Transmission Date: 20141002
  Serious: No
  Sender: FDA-Public Use
  Company Number: US-PFIZER INC-2014020192

PATIENT
  Age: 77 Year
  Sex: Male
  Weight: 99.77 kg

DRUGS (5)
  1. LYRICA [Suspect]
     Indication: POST HERPETIC NEURALGIA
     Dosage: 100 MG, 2X/DAY
     Route: 048
  2. LYRICA [Suspect]
     Dosage: 100 MG, 3X/DAY
     Route: 048
  3. TOPAMAX [Suspect]
     Dosage: UNK
  4. PRIMIDONE [Concomitant]
     Indication: CONVULSION
     Dosage: UNK
  5. PROPANOLOL [Concomitant]
     Indication: TREMOR
     Dosage: UNK

REACTIONS (1)
  - Somnolence [Unknown]
